FAERS Safety Report 14694046 (Version 2)
Quarter: 2019Q2

REPORT INFORMATION
  Report Type: Spontaneous
  Country: US (occurrence: US)
  Receive Date: 20180329
  Receipt Date: 20190415
  Transmission Date: 20190711
  Serious: No
  Sender: FDA-Public Use
  Company Number: US-PFIZER INC-2018128063

PATIENT
  Age: 65 Year
  Sex: Female

DRUGS (11)
  1. LYRICA [Suspect]
     Active Substance: PREGABALIN
     Indication: INTERVERTEBRAL DISC COMPRESSION
  2. TRAMADOL. [Concomitant]
     Active Substance: TRAMADOL
     Indication: INFLAMMATION
  3. TIZANIDINE HCL [Concomitant]
     Active Substance: TIZANIDINE HYDROCHLORIDE
     Dosage: 4 MG, UNK, [W/IN 1 YEAR]
  4. METAXALONE. [Concomitant]
     Active Substance: METAXALONE
     Indication: MUSCLE SPASMS
     Dosage: 800 MG, 3X/DAY (800MG TABLETS, UP TO 3 TIMES PER DAY)
  5. LYRICA [Suspect]
     Active Substance: PREGABALIN
     Indication: SCOLIOSIS
     Dosage: UNK, 2X/DAY (TAKE IT LATER IN THE MORNING OR LATER IN THE EVENING)
  6. LYRICA [Suspect]
     Active Substance: PREGABALIN
     Indication: PAIN
  7. CELECOXIB. [Concomitant]
     Active Substance: CELECOXIB
     Dosage: UNK, [W/IN 1 YEAR]
  8. LYRICA [Suspect]
     Active Substance: PREGABALIN
     Indication: FIBROMYALGIA
     Dosage: 100 MG, 3X/DAY
  9. LYRICA [Suspect]
     Active Substance: PREGABALIN
     Indication: BACK DISORDER
  10. LYRICA [Suspect]
     Active Substance: PREGABALIN
     Indication: NEURITIS
  11. TRAMADOL. [Concomitant]
     Active Substance: TRAMADOL
     Indication: BACK DISORDER
     Dosage: 1 DF, AS NEEDED (1 TABLET EVERY 6 HOURS AS NEEDED, MAX 4 PER DAY)

REACTIONS (2)
  - Intentional product misuse [Unknown]
  - Renal disorder [Recovered/Resolved]

NARRATIVE: CASE EVENT DATE: 2016
